FAERS Safety Report 21487870 (Version 1)
Quarter: 2022Q4

REPORT INFORMATION
  Report Type: Spontaneous
  Country: NL (occurrence: NL)
  Receive Date: 20221020
  Receipt Date: 20221020
  Transmission Date: 20230112
  Serious: Yes (Death)
  Sender: FDA-Public Use
  Company Number: NL-Vifor (International) Inc.-VIT-2022-07090

PATIENT
  Sex: Male

DRUGS (1)
  1. VELTASSA [Suspect]
     Active Substance: PATIROMER
     Indication: Product used for unknown indication
     Dates: end: 2022

REACTIONS (2)
  - Anorectal discomfort [Unknown]
  - Death [Fatal]

NARRATIVE: CASE EVENT DATE: 20220101
